FAERS Safety Report 8428866 (Version 3)
Quarter: 2013Q4

REPORT INFORMATION
  Report Type: Spontaneous
  Country: US (occurrence: US)
  Receive Date: 20120227
  Receipt Date: 20131127
  Transmission Date: 20140711
  Serious: Yes (Hospitalization)
  Sender: FDA-Public Use
  Company Number: US-GLAXOSMITHKLINE-A0797351A

PATIENT
  Age: 48 Year
  Sex: Female
  Weight: 77.3 kg

DRUGS (2)
  1. AVANDIA [Suspect]
     Indication: DIABETES MELLITUS
     Route: 048
     Dates: start: 20020528, end: 20071120
  2. AVANDAMET [Suspect]
     Indication: DIABETES MELLITUS
     Dosage: 4MG TWICE PER DAY
     Route: 048
     Dates: start: 20040716, end: 20050211

REACTIONS (8)
  - Spinal compression fracture [Unknown]
  - Scapula fracture [Unknown]
  - Rib fracture [Unknown]
  - Nervousness [Unknown]
  - Emotional distress [Unknown]
  - Anxiety [Unknown]
  - Depression [Unknown]
  - Pain [Unknown]
